FAERS Safety Report 9581738 (Version 3)
Quarter: 2013Q4

REPORT INFORMATION
  Report Type: Spontaneous
  Country: US (occurrence: US)
  Receive Date: 20131002
  Receipt Date: 20131023
  Transmission Date: 20140711
  Serious: Yes (Other)
  Sender: FDA-Public Use
  Company Number: US-UCBSA-097582

PATIENT
  Age: 45 Year
  Sex: Male
  Weight: 63.64 kg

DRUGS (8)
  1. KEPPRA XR [Suspect]
     Indication: CONVULSION
     Dosage: DOSE STRENGTH: 500MG
     Dates: start: 2013
  2. KEPPRA XR [Suspect]
     Indication: CONVULSION
     Dates: start: 20130916
  3. KLONOPIN [Concomitant]
     Indication: CONVULSION
     Dosage: UNKNOWN
     Dates: start: 2013
  4. PHENOBARBITAL [Concomitant]
     Indication: CONVULSION
     Dosage: AT BEDTIME
  5. FAMOTIDINE [Concomitant]
     Dosage: 20 MG, 2 TABLETS BID
  6. MELOXICAM [Concomitant]
     Indication: EYE PAIN
     Dosage: 7.5 MG
  7. MELOXICAM [Concomitant]
     Indication: HEADACHE
     Dosage: 7.5 MG
  8. ASA [Concomitant]
     Dosage: 81 MG QAM

REACTIONS (3)
  - Grand mal convulsion [Not Recovered/Not Resolved]
  - Inappropriate schedule of drug administration [Unknown]
  - Overdose [Unknown]
